FAERS Safety Report 15849065 (Version 1)
Quarter: 2019Q1

REPORT INFORMATION
  Report Type: Other
  Country: FR (occurrence: FR)
  Receive Date: 20190121
  Receipt Date: 20190121
  Transmission Date: 20190417
  Serious: Yes (Hospitalization)
  Sender: FDA-Public Use
  Company Number: FR-EMCURE PHARMS-2018HTG00395

PATIENT
  Age: 62 Year
  Sex: Male
  Weight: 72 kg

DRUGS (4)
  1. BICNU [Suspect]
     Active Substance: CARMUSTINE
     Indication: LYMPHOMA
     Dosage: 576 MG, 1X/DAY
     Route: 042
     Dates: start: 20160920, end: 20160920
  2. ALKERAN [Suspect]
     Active Substance: MELPHALAN
     Indication: LYMPHOMA
     Dosage: 268.8 MG, 1X/DAY
     Route: 042
     Dates: start: 20160925, end: 20160925
  3. ETOPOSIDE (TEVA) [Suspect]
     Active Substance: ETOPOSIDE
     Indication: LYMPHOMA
     Dosage: 384 MG, 1X/DAY
     Route: 042
     Dates: start: 20160921, end: 20160924
  4. CYTARABINE EG [Suspect]
     Active Substance: CYTARABINE
     Indication: LYMPHOMA
     Dosage: 768 MG, 1X/DAY
     Route: 042
     Dates: start: 20160921, end: 20160924

REACTIONS (4)
  - Diarrhoea [Recovered/Resolved]
  - Device related infection [Recovered/Resolved]
  - Colitis [Recovered/Resolved]
  - Febrile bone marrow aplasia [Recovered/Resolved]

NARRATIVE: CASE EVENT DATE: 20160924
